FAERS Safety Report 5333841-7 (Version None)
Quarter: 2007Q2

REPORT INFORMATION
  Report Type: 
  Country: None (occurrence: None)
  Receive Date: 20070524
  Receipt Date: 20070511
  Transmission Date: 20071010
  Serious: Yes (Other)
  Sender: FDA-Public Use
  Company Number: US-ROCHE-488325

PATIENT
  Age: 15 Year
  Sex: Female
  Weight: 59.4 kg

DRUGS (1)
  1. TAMIFLU [Suspect]
     Indication: DRUG USE FOR UNKNOWN INDICATION
     Dosage: ORAL DOSE REPORTED AS 75 AND FORM AS TABS.
     Route: 048
     Dates: start: 20070301, end: 20070304

REACTIONS (3)
  - DELIRIUM [None]
  - DISORIENTATION [None]
  - DIZZINESS [None]
